FAERS Safety Report 16940105 (Version 19)
Quarter: 2020Q3

REPORT INFORMATION
  Report Type: Report from Study
  Country: TR (occurrence: TR)
  Receive Date: 20191021
  Receipt Date: 20200731
  Transmission Date: 20201102
  Serious: Yes (Death, Life-Threatening, Hospitalization)
  Sender: FDA-Public Use
  Company Number: TR-EISAI MEDICAL RESEARCH-EC-2019-063641

PATIENT
  Age: 69 Year
  Sex: Male
  Weight: 82 kg

DRUGS (7)
  1. LENVATINIB [Suspect]
     Active Substance: LENVATINIB
     Indication: HEPATOCELLULAR CARCINOMA
     Route: 048
     Dates: start: 20190926, end: 20191009
  2. DESAL (FUROSEMIDE) [Concomitant]
     Active Substance: FUROSEMIDE
     Dates: start: 20190925
  3. DIOVAN [Concomitant]
     Active Substance: VALSARTAN
     Dates: start: 201001
  4. ALDACTONE [Concomitant]
     Active Substance: SPIRONOLACTONE
     Dates: start: 20190925
  5. PLACEBO [Suspect]
     Active Substance: UNSPECIFIED INGREDIENT
     Indication: HEPATOCELLULAR CARCINOMA
     Route: 041
     Dates: start: 20190926, end: 20190926
  6. GLUCOPHAGE [Concomitant]
     Active Substance: METFORMIN HYDROCHLORIDE
     Dates: start: 201601
  7. GABATEVA [Concomitant]
     Active Substance: GABAPENTIN
     Dates: start: 201201

REACTIONS (2)
  - Pneumonia [Not Recovered/Not Resolved]
  - Hepatorenal syndrome [Fatal]

NARRATIVE: CASE EVENT DATE: 20191007
